FAERS Safety Report 6019607-3 (Version None)
Quarter: 2008Q4

REPORT INFORMATION
  Report Type: 
  Country: None (occurrence: None)
  Receive Date: 20081224
  Receipt Date: 20081222
  Transmission Date: 20090506
  Serious: Yes (Life-Threatening, Other)
  Sender: FDA-Public Use
  Company Number: PHHY2008BR32974

PATIENT
  Age: 81 Year
  Sex: Male

DRUGS (1)
  1. EXELON [Suspect]
     Dosage: 2 DF, ONCE/SINGLE
     Route: 048

REACTIONS (7)
  - ABDOMINAL PAIN UPPER [None]
  - APPARENT LIFE THREATENING EVENT [None]
  - ASTHENIA [None]
  - DYSENTERY [None]
  - HICCUPS [None]
  - SPEECH DISORDER [None]
  - VOMITING [None]
